FAERS Safety Report 9145261 (Version 1)
Quarter: 2013Q1

REPORT INFORMATION
  Report Type: Spontaneous
  Country: US (occurrence: None)
  Receive Date: 20130226
  Receipt Date: 20130226
  Transmission Date: 20140127
  Serious: Yes (Hospitalization, Other)
  Sender: FDA-Public Use
  Company Number: None

PATIENT
  Age: 23 Year
  Sex: Male
  Weight: 143.79 kg

DRUGS (1)
  1. ADDERALL [Suspect]

REACTIONS (2)
  - Hallucination, visual [None]
  - Abnormal behaviour [None]
